FAERS Safety Report 8210288-7 (Version None)
Quarter: 2012Q1

REPORT INFORMATION
  Report Type: 
  Country: None (occurrence: None)
  Receive Date: 20120314
  Receipt Date: 20120206
  Transmission Date: 20120608
  Serious: No
  Sender: FDA-Public Use
  Company Number: US-ASTRAZENECA-2010SE26723

PATIENT
  Age: 61 Year
  Sex: Male
  Weight: 72.6 kg

DRUGS (4)
  1. CRESTOR [Suspect]
     Indication: BLOOD CHOLESTEROL INCREASED
     Route: 048
  2. TOPROL-XL [Suspect]
     Indication: HYPERTENSION
     Route: 048
     Dates: start: 20030101
  3. ASPIRIN [Concomitant]
  4. FENOFIBRATE [Concomitant]

REACTIONS (4)
  - WOUND INFECTION [None]
  - FEELING ABNORMAL [None]
  - NERVOUSNESS [None]
  - MUSCLE SPASMS [None]
